FAERS Safety Report 11208227 (Version 1)
Quarter: 2015Q2

REPORT INFORMATION
  Report Type: Spontaneous
  Country: US (occurrence: US)
  Receive Date: 20150622
  Receipt Date: 20150622
  Transmission Date: 20150821
  Serious: Yes (Other)
  Sender: FDA-Public Use
  Company Number: US-PFIZER INC-2015202795

PATIENT
  Age: 18 Month
  Sex: Female
  Weight: 16 kg

DRUGS (1)
  1. ADVIL [Suspect]
     Active Substance: IBUPROFEN
     Dosage: 200MG TABLETS, PLACED 5 IN MOUTH THEN SPIT OUT
     Dates: start: 20150615, end: 20150615

REACTIONS (4)
  - Choking [Unknown]
  - Accidental overdose [Unknown]
  - Expired product administered [Unknown]
  - Accidental exposure to product by child [Unknown]

NARRATIVE: CASE EVENT DATE: 20150615
